FAERS Safety Report 7699951-4 (Version None)
Quarter: 2011Q3

REPORT INFORMATION
  Report Type: 
  Country: None (occurrence: None)
  Receive Date: 20110822
  Receipt Date: 20100428
  Transmission Date: 20111222
  Serious: No
  Sender: FDA-Public Use
  Company Number: US-BAYER-201021396NA

PATIENT
  Sex: Female

DRUGS (1)
  1. ANGELIQ [Suspect]
     Dosage: UNK
     Route: 048
     Dates: start: 20100422, end: 20100426

REACTIONS (1)
  - PAIN IN EXTREMITY [None]
